FAERS Safety Report 24605887 (Version 1)
Quarter: 2024Q4

REPORT INFORMATION
  Report Type: Spontaneous
  Country: US (occurrence: US)
  Receive Date: 20241111
  Receipt Date: 20241111
  Transmission Date: 20250115
  Serious: No
  Sender: AJANTA PHARMA USA INC
  Company Number: US-AJANTA-2024AJA00147

PATIENT
  Age: 62 Year
  Sex: Female
  Weight: 128 kg

DRUGS (2)
  1. CHOLESTYRAMINE [Suspect]
     Active Substance: CHOLESTYRAMINE
     Indication: Prophylaxis against diarrhoea
     Route: 048
     Dates: end: 202408
  2. CHOLESTYRAMINE [Suspect]
     Active Substance: CHOLESTYRAMINE
     Route: 048
     Dates: start: 202408

REACTIONS (8)
  - Oropharyngeal discomfort [Unknown]
  - Product taste abnormal [Unknown]
  - Product solubility abnormal [Unknown]
  - Product physical consistency issue [Unknown]
  - Product packaging difficult to open [Unknown]
  - Product use complaint [Unknown]
  - Product quality issue [Unknown]
  - Product use in unapproved indication [Unknown]

NARRATIVE: CASE EVENT DATE: 20240801
